FAERS Safety Report 15125591 (Version 2)
Quarter: 2018Q3

REPORT INFORMATION
  Report Type: Spontaneous
  Country: US (occurrence: US)
  Receive Date: 20180710
  Receipt Date: 20180718
  Transmission Date: 20181010
  Serious: Yes (Other)
  Sender: FDA-Public Use
  Company Number: US-PFIZER INC-2018274233

PATIENT
  Age: 78 Year
  Sex: Female

DRUGS (17)
  1. IBRANCE [Suspect]
     Active Substance: PALBOCICLIB
     Dosage: 125 MG, CYCLIC (AT THE SAME TIME ONCE DAILY WITH FOOD AND WATER FOR 21 DAYS, THEN 7 DAYS OFF)
     Route: 048
     Dates: start: 20180703
  2. EXEMESTANE. [Concomitant]
     Active Substance: EXEMESTANE
     Dosage: 25 MG, UNK
  3. FASLODEX [Concomitant]
     Active Substance: FULVESTRANT
     Dosage: UNK
  4. AMOXICILLIN. [Concomitant]
     Active Substance: AMOXICILLIN
     Dosage: 500 MG, UNK
  5. IBRANCE [Suspect]
     Active Substance: PALBOCICLIB
     Indication: BREAST CANCER FEMALE
     Dosage: 125 MG, CYCLIC (ONE CAPSULE BY MOUTH AT THE SAME TIME ONCE DAILY WITH FOOD AND WATER FOR 21 DAYS)
     Route: 048
     Dates: start: 20180629
  6. ACYCLOVIR. [Concomitant]
     Active Substance: ACYCLOVIR
     Dosage: 800 MG, UNK
  7. ATENOLOL. [Concomitant]
     Active Substance: ATENOLOL
     Dosage: 25 MG, UNK
  8. FAMOTIDINE. [Concomitant]
     Active Substance: FAMOTIDINE
     Dosage: 20 MG, UNK
  9. PENICILLIN V [Concomitant]
     Active Substance: PENICILLIN V
     Dosage: 500 MG, UNK
  10. DEXAMETHASONE. [Concomitant]
     Active Substance: DEXAMETHASONE
     Dosage: UNK
  11. LEVOTHYROXIN [Concomitant]
     Active Substance: LEVOTHYROXINE
     Dosage: 112 UG, UNK
  12. NORCO [Concomitant]
     Active Substance: ACETAMINOPHEN\HYDROCODONE BITARTRATE
     Dosage: UNK (HYDROCODONE BITRATE: 5MG)/ACETAMINOPHEN: 325 MG)
  13. FENTANYL. [Concomitant]
     Active Substance: FENTANYL
     Dosage: 12 UG, UNK  (FENTANYL D S 12MCG/HR)
  14. NYSTATIN. [Concomitant]
     Active Substance: NYSTATIN
     Dosage: UNK (NYSTATIN OIN 100000)
  15. ONDANSETRON [Concomitant]
     Active Substance: ONDANSETRON
     Dosage: 4 MG, UNK
  16. DEXMEDETOMIDINE. [Concomitant]
     Active Substance: DEXMEDETOMIDINE
     Dosage: UNK (200MCG/2)
  17. FLUTICASONE PROPIONATE. [Concomitant]
     Active Substance: FLUTICASONE PROPIONATE
     Dosage: UNK

REACTIONS (5)
  - Spinal fracture [Not Recovered/Not Resolved]
  - Back pain [Not Recovered/Not Resolved]
  - Lumbar vertebral fracture [Not Recovered/Not Resolved]
  - Oral disorder [Not Recovered/Not Resolved]
  - Pain in extremity [Not Recovered/Not Resolved]
